FAERS Safety Report 8965956 (Version 1)
Quarter: 2012Q4

REPORT INFORMATION
  Report Type: Spontaneous
  Country: US (occurrence: None)
  Receive Date: 20121204
  Receipt Date: 20121204
  Transmission Date: 20130627
  Serious: Yes (Other)
  Sender: FDA-Public Use
  Company Number: 2012MA013692

PATIENT
  Age: 78 Year
  Sex: Male

DRUGS (5)
  1. RAMIPRIL [Suspect]
     Indication: HYPERTENSION
     Route: 048
     Dates: start: 20100803, end: 20121002
  2. ATENOLOL [Concomitant]
  3. ACETYLSALICYCLIC ACID [Concomitant]
  4. NICORANDIL [Concomitant]
  5. SIMVASTATIN [Suspect]

REACTIONS (3)
  - Rhinorrhoea [None]
  - Muscle spasms [None]
  - Respiratory disorder [None]
